FAERS Safety Report 4435992-8 (Version None)
Quarter: 2004Q3

REPORT INFORMATION
  Report Type: 
  Country: None (occurrence: None)
  Receive Date: 20040826
  Receipt Date: 20040811
  Transmission Date: 20050211
  Serious: Yes (Other)
  Sender: FDA-Public Use
  Company Number: 2004US000950

PATIENT
  Age: 13 Year
  Sex: Female

DRUGS (1)
  1. PROGRAF [Suspect]
     Indication: APLASTIC ANAEMIA

REACTIONS (1)
  - DIABETIC KETOACIDOSIS [None]
